FAERS Safety Report 4438005-7 (Version None)
Quarter: 2004Q3

REPORT INFORMATION
  Report Type: 
  Country: None (occurrence: None)
  Receive Date: 20040831
  Receipt Date: 20040504
  Transmission Date: 20050211
  Serious: No
  Sender: FDA-Public Use
  Company Number: US-GLAXOSMITHKLINE-A0509466A

PATIENT
  Age: 49 Year
  Sex: Female
  Weight: 60.9 kg

DRUGS (2)
  1. WELLBUTRIN [Suspect]
     Dosage: 300MG PER DAY
     Route: 048
     Dates: start: 20040301
  2. VALIUM [Concomitant]
     Dosage: 10MGM AT NIGHT
     Route: 048

REACTIONS (1)
  - WEIGHT INCREASED [None]
